FAERS Safety Report 16810498 (Version 1)
Quarter: 2019Q4

REPORT INFORMATION
  Report Type: Spontaneous
  Country: US (occurrence: US)
  Receive Date: 20190916
  Receipt Date: 20190916
  Transmission Date: 20200122
  Serious: Yes (Other)
  Sender: FDA-Public Use
  Company Number: None

PATIENT
  Age: 42 Year
  Sex: Female
  Weight: 90 kg

DRUGS (7)
  1. PEPCID [Concomitant]
     Active Substance: FAMOTIDINE
  2. LAMICTAL [Concomitant]
     Active Substance: LAMOTRIGINE
  3. LOVASTATIN. [Concomitant]
     Active Substance: LOVASTATIN
  4. HYOSCYAMINE SULFATE 0.125 MG GENERIC FOR LEVSIN [Suspect]
     Active Substance: HYOSCYAMINE SULFATE
     Indication: GASTRIC DISORDER
     Dosage: ?          QUANTITY:1 TABLET(S);OTHER FREQUENCY:30 MINUTES BEFORE;?
     Route: 048
     Dates: start: 20190913, end: 20190914
  5. LEXAPRO [Concomitant]
     Active Substance: ESCITALOPRAM OXALATE
  6. HUMALOG [Concomitant]
     Active Substance: INSULIN LISPRO
  7. ZOFRAN [Concomitant]
     Active Substance: ONDANSETRON HYDROCHLORIDE

REACTIONS (1)
  - Paralysis [None]

NARRATIVE: CASE EVENT DATE: 20190914
